FAERS Safety Report 7395690-8 (Version None)
Quarter: 2011Q2

REPORT INFORMATION
  Report Type: 
  Country: None (occurrence: None)
  Receive Date: 20110405
  Receipt Date: 20101026
  Transmission Date: 20111010
  Serious: No
  Sender: FDA-Public Use
  Company Number: US-BAYER-201023518BCC

PATIENT
  Sex: Female

DRUGS (1)
  1. RID MOUSSE [Suspect]
     Indication: LICE INFESTATION
     Dosage: UNK
     Route: 061
     Dates: start: 20101026

REACTIONS (1)
  - NO ADVERSE EVENT [None]
